FAERS Safety Report 8868564 (Version 1)
Quarter: 2012Q4

REPORT INFORMATION
  Report Type: 
  Country: US (occurrence: US)
  Receive Date: 20121026
  Receipt Date: 20121026
  Transmission Date: 20130627
  Serious: No
  Sender: FDA-Public Use
  Company Number: US-AMGEN-USASP2012046253

PATIENT
  Age: 63 Year
  Sex: Female
  Weight: 122.45 kg

DRUGS (8)
  1. ENBREL [Suspect]
     Indication: PRODUCT USED FOR UNKNOWN INDICATION
     Dosage: 50 mg, qwk
     Route: 058
  2. PROTONIX [Concomitant]
     Dosage: 20 mg, UNK
  3. CELEBREX [Concomitant]
     Dosage: 50 mg, UNK
  4. HYDROCHLOROTH [Concomitant]
     Dosage: 12.5 mg, UNK
  5. KLOR-CON [Concomitant]
     Dosage: 8 Tab 8MEQ ER
  6. VITAMIN D /00107901/ [Concomitant]
     Dosage: 400 unit, UNK
  7. FISH OIL [Concomitant]
     Dosage: UNK
  8. MULTIVITAMIN                       /00097801/ [Concomitant]

REACTIONS (1)
  - Nasopharyngitis [Unknown]
